FAERS Safety Report 14318589 (Version 21)
Quarter: 2024Q3

REPORT INFORMATION
  Report Type: Spontaneous
  Country: LT (occurrence: LT)
  Receive Date: 20171222
  Receipt Date: 20240729
  Transmission Date: 20241016
  Serious: Yes (Life-Threatening, Hospitalization, Other)
  Sender: MERCK
  Company Number: LT-PFIZER INC-2017532771

PATIENT
  Age: 53 Year
  Sex: Female

DRUGS (19)
  1. APREPITANT [Interacting]
     Active Substance: APREPITANT
     Indication: Prophylaxis of nausea and vomiting
     Dosage: 125 MG, DAILY
     Route: 048
     Dates: start: 20161121, end: 20161121
  2. TRAMADOL HYDROCHLORIDE [Interacting]
     Active Substance: TRAMADOL HYDROCHLORIDE
     Indication: Pain management
     Dosage: 100 MG, DAILY (LONG-TERM USE)
     Route: 048
     Dates: start: 2016
  3. ALPRAZOLAM [Interacting]
     Active Substance: ALPRAZOLAM
     Indication: Anxiety disorder
     Dosage: 0.5 MG, DAILY (LONG-TERM USE)
     Route: 048
  4. CYANOCOBALAMIN [Interacting]
     Active Substance: CYANOCOBALAMIN
     Indication: Premedication
     Dosage: 1000 MG, UNK
     Route: 042
     Dates: start: 2016
  5. SHARK CARTILAGE [Interacting]
     Active Substance: SHARK CARTILAGE\SHARK, UNSPECIFIED
     Dosage: 7.5 ML, DAILY
     Route: 048
     Dates: start: 2016
  6. METOPROLOL SUCCINATE [Interacting]
     Active Substance: METOPROLOL SUCCINATE
     Indication: Hypertension
     Dosage: 47.5 MG, DAILY (LONG-TERM USE)
     Route: 048
     Dates: start: 2016
  7. FOLIC ACID [Interacting]
     Active Substance: FOLIC ACID
     Indication: Premedication
     Dosage: 1000 MG, DAILY
     Route: 042
     Dates: start: 2016
  8. FENTANYL [Interacting]
     Active Substance: FENTANYL\FENTANYL CITRATE
     Indication: Pain management
     Dosage: UNK, DAILY (75 UG/H, LONG-TERM USE)
     Route: 061
  9. FENTANYL [Interacting]
     Active Substance: FENTANYL\FENTANYL CITRATE
     Indication: Pain prophylaxis
  10. CISPLATIN [Interacting]
     Active Substance: CISPLATIN
     Indication: Pleural mesothelioma
     Dosage: 0.5MG/ML 100ML -II CYCLE
     Route: 042
     Dates: start: 20161101
  11. PEMETREXED DISODIUM [Interacting]
     Active Substance: PEMETREXED DISODIUM
     Indication: Pleural mesothelioma
     Dosage: II CYCLE, CYCLICAL
     Route: 065
     Dates: start: 20161101
  12. DEXAMETHASONE [Interacting]
     Active Substance: DEXAMETHASONE
     Indication: Premedication
     Dosage: 4 MG (8 TABLETS), DAILY
     Route: 048
     Dates: start: 20161120, end: 20161121
  13. DEXAMETHASONE [Interacting]
     Active Substance: DEXAMETHASONE
     Indication: Drug tolerance
  14. TIANEPTINE [Interacting]
     Active Substance: TIANEPTINE
     Indication: Pain management
     Dosage: 12.5 MG, DAILY (LONG-TERM USE)
     Route: 048
     Dates: start: 2016
  15. TIANEPTINE [Interacting]
     Active Substance: TIANEPTINE
     Indication: Depression
  16. MANNITOL [Interacting]
     Active Substance: MANNITOL
     Indication: Toxicity to various agents
     Dosage: 1000 ML, DAILY (10 PROC.)
     Route: 042
     Dates: start: 2016
  17. MANNITOL [Interacting]
     Active Substance: MANNITOL
     Indication: Drug toxicity prophylaxis
  18. MANNITOL [Interacting]
     Active Substance: MANNITOL
     Indication: Drug toxicity prophylaxis
  19. ONDANSETRON [Interacting]
     Active Substance: ONDANSETRON
     Indication: Prophylaxis of nausea and vomiting
     Dosage: 8 MG, DAILY
     Route: 048
     Dates: start: 20161121, end: 20161121

REACTIONS (5)
  - Cardio-respiratory arrest [Recovered/Resolved]
  - Haemodynamic instability [Recovered/Resolved]
  - Drug interaction [Unknown]
  - Cardiotoxicity [Unknown]
  - Hypomagnesaemia [Unknown]

NARRATIVE: CASE EVENT DATE: 20160101
